FAERS Safety Report 9188335 (Version 1)
Quarter: 2013Q1

REPORT INFORMATION
  Report Type: Spontaneous
  Country: US (occurrence: US)
  Receive Date: 20130325
  Receipt Date: 20130325
  Transmission Date: 20140127
  Serious: Yes (Other)
  Sender: FDA-Public Use
  Company Number: US-PFIZER INC-2013093807

PATIENT
  Age: 51 Year
  Sex: Female
  Weight: 61.22 kg

DRUGS (8)
  1. LYRICA [Suspect]
     Indication: FIBROMYALGIA
     Dosage: 50 MG, 2X/DAY
     Route: 048
     Dates: start: 2011
  2. LYRICA [Suspect]
     Dosage: 75 MG, 2X/DAY
     Route: 048
  3. LYRICA [Suspect]
     Dosage: 50 MG, 3X/DAY
     Route: 048
     Dates: start: 201303
  4. TIMOLOL [Concomitant]
     Dosage: UNK
  5. BRIMONIDINE [Concomitant]
     Dosage: UNK
  6. LATANOPROST [Concomitant]
     Dosage: UNK
  7. LORAZEPAM [Concomitant]
     Dosage: UNK
  8. OXYCODONE [Concomitant]
     Dosage: UNK

REACTIONS (4)
  - Hypothyroidism [Unknown]
  - Vitamin D decreased [Unknown]
  - Drug effect incomplete [Unknown]
  - Malaise [Unknown]
